FAERS Safety Report 20567682 (Version 2)
Quarter: 2022Q1

REPORT INFORMATION
  Report Type: Report from Study
  Country: DE (occurrence: DE)
  Receive Date: 20220308
  Receipt Date: 20220322
  Transmission Date: 20220423
  Serious: Yes (Other)
  Sender: FDA-Public Use
  Company Number: DE-AMGEN-DEUCT2022038745

PATIENT
  Age: 69 Year
  Sex: Female
  Weight: 50 kg

DRUGS (9)
  1. CARFILZOMIB [Suspect]
     Active Substance: CARFILZOMIB
     Indication: Plasma cell myeloma
     Dosage: 42.1 MILLIGRAM, PER CHEMO REGIM
     Route: 042
     Dates: start: 20180920, end: 20191023
  2. ELOTUZUMAB [Suspect]
     Active Substance: ELOTUZUMAB
     Indication: Plasma cell myeloma
     Dosage: 1000 MILLIGRAM, PER CHEMO REGIM
     Route: 042
     Dates: start: 20180920
  3. ELOTUZUMAB [Suspect]
     Active Substance: ELOTUZUMAB
     Dosage: UNK UNK, PER CHEMO REGIM
     Route: 042
     Dates: start: 20210408
  4. LENALIDOMIDE [Suspect]
     Active Substance: LENALIDOMIDE
     Indication: Plasma cell myeloma
     Dosage: 10 MILLIGRAM, PER CHEMO REGIM
     Route: 048
     Dates: start: 20180920
  5. LENALIDOMIDE [Suspect]
     Active Substance: LENALIDOMIDE
     Dosage: UNK UNK, PER CHEMO REGIM
     Route: 048
     Dates: start: 20210408
  6. DEXAMETHASONE [Suspect]
     Active Substance: DEXAMETHASONE
     Indication: Plasma cell myeloma
     Dosage: 28 MILLIGRAM, PER CHEMO REGIM
     Route: 048
     Dates: start: 20180920
  7. DEXAMETHASONE [Suspect]
     Active Substance: DEXAMETHASONE
     Dosage: 8 MILLIGRAM, PER CHEMO REGIM
     Route: 042
  8. DEXAMETHASONE [Suspect]
     Active Substance: DEXAMETHASONE
     Dosage: UNK UNK, PER CHEMO REGIM
     Route: 042
     Dates: start: 20210408
  9. MELPHALAN [Concomitant]
     Active Substance: MELPHALAN
     Dosage: 200 MILLIGRAM/SQ. METER
     Dates: start: 20190425, end: 20190428

REACTIONS (1)
  - COVID-19 [Recovered/Resolved]

NARRATIVE: CASE EVENT DATE: 20210224
